FAERS Safety Report 9023102 (Version 1)
Quarter: 2013Q1

REPORT INFORMATION
  Report Type: Spontaneous
  Country: US (occurrence: US)
  Receive Date: 20130120
  Receipt Date: 20130120
  Transmission Date: 20140127
  Serious: No
  Sender: FDA-Public Use
  Company Number: US-ALLERGAN-1212695US

PATIENT
  Age: 61 Year
  Sex: Male

DRUGS (2)
  1. BOTOX COSMETIC [Suspect]
     Indication: SKIN WRINKLING
     Dosage: 36 UNITS, SINGLE
     Route: 030
     Dates: start: 20120716, end: 20120716
  2. BOTOX COSMETIC [Suspect]
     Dosage: UNK UNK, SINGLE
     Route: 030
     Dates: start: 20120716, end: 20120716

REACTIONS (1)
  - Therapeutic response decreased [Unknown]
